FAERS Safety Report 5877238-X (Version None)
Quarter: 2008Q3

REPORT INFORMATION
  Report Type: 
  Country: None (occurrence: None)
  Receive Date: 20080902
  Receipt Date: 20080820
  Transmission Date: 20090109
  Serious: Yes (Death, Hospitalization)
  Sender: FDA-Public Use
  Company Number: WSDF_00735

PATIENT
  Age: 42 Year
  Sex: Male
  Weight: 158.3054 kg

DRUGS (4)
  1. WINRHO SDF [Suspect]
     Indication: IDIOPATHIC THROMBOCYTOPENIC PURPURA
     Dosage: 44.13 UG/KG ONCE; IV
     Route: 042
     Dates: start: 20080307, end: 20080307
  2. PREDNISONE [Concomitant]
  3. PREVACID [Concomitant]
  4. IMMUNOGLUBULIN [Concomitant]

REACTIONS (16)
  - ACUTE HEPATIC FAILURE [None]
  - BLOOD PRESSURE SYSTOLIC INCREASED [None]
  - CLOSTRIDIUM BACTERAEMIA [None]
  - CLOSTRIDIUM DIFFICILE COLITIS [None]
  - DIABETES MELLITUS [None]
  - DISSEMINATED INTRAVASCULAR COAGULATION [None]
  - EXTRAVASCULAR HAEMOLYSIS [None]
  - HAEMOLYSIS [None]
  - HEPATOSPLENOMEGALY [None]
  - LETHARGY [None]
  - MALAISE [None]
  - NAUSEA [None]
  - RENAL FAILURE ACUTE [None]
  - RHONCHI [None]
  - SEPSIS [None]
  - VOMITING [None]
